FAERS Safety Report 25978138 (Version 2)
Quarter: 2025Q4

REPORT INFORMATION
  Report Type: Spontaneous
  Country: EU (occurrence: EU)
  Receive Date: 20251030
  Receipt Date: 20251106
  Transmission Date: 20260118
  Serious: Yes (Disabling, Other)
  Sender: CHEPLAPHARM
  Company Number: None

PATIENT
  Age: 41 Year
  Sex: Female
  Weight: 75 kg

DRUGS (4)
  1. OLANZAPINE [Suspect]
     Active Substance: OLANZAPINE
     Indication: Bipolar disorder
     Dosage: LONGER PERIOD, APPROX. 2 YEARS 5 MG PER DAY?DAILY DOSE: 5 MILLIGRAM
     Route: 048
     Dates: start: 20210901
  2. OLANZAPINE [Suspect]
     Active Substance: OLANZAPINE
     Indication: Bipolar disorder
     Dosage: HAD TO INCREASE AGAIN, TO 10MG?DAILY DOSE: 10 MILLIGRAM
     Route: 048
     Dates: start: 202409, end: 20241004
  3. OLANZAPINE [Suspect]
     Active Substance: OLANZAPINE
     Indication: Bipolar disorder
     Dosage: REDUCED TO 2.5 MG?DAILY DOSE: 2.5 MILLIGRAM
     Route: 048
  4. LAMOTRIGINE [Concomitant]
     Active Substance: LAMOTRIGINE
     Dosage: CHEWABLE TABLET, 100 MG (MILLIGRAM)
     Route: 048
     Dates: start: 201910

REACTIONS (2)
  - Dystonia [Not Recovered/Not Resolved]
  - Blepharospasm [Not Recovered/Not Resolved]
